FAERS Safety Report 8255398 (Version 2)
Quarter: 2019Q3

REPORT INFORMATION
  Report Type: Spontaneous
  Country: FR (occurrence: FR)
  Receive Date: 20111118
  Receipt Date: 20190708
  Transmission Date: 20191005
  Serious: Yes (Death, Other)
  Sender: FDA-Public Use
  Company Number: FR-ELI_LILLY_AND_COMPANY-FR97106292A

PATIENT
  Age: 27 Year
  Sex: Male

DRUGS (2)
  1. METHYLTESTOSTERONE. [Concomitant]
     Active Substance: METHYLTESTOSTERONE
     Indication: PRODUCT USED FOR UNKNOWN INDICATION
     Dosage: UNK, UNKNOWN
     Route: 048
  2. PROZAC [Suspect]
     Active Substance: FLUOXETINE HYDROCHLORIDE
     Indication: DEPRESSION
     Dosage: UNK, UNKNOWN
     Route: 048

REACTIONS (5)
  - Aggression [Unknown]
  - Completed suicide [Fatal]
  - Homicide [Unknown]
  - Delusion [Unknown]
  - Drug abuse [Unknown]

NARRATIVE: CASE EVENT DATE: 19910401
